FAERS Safety Report 14330544 (Version 2)
Quarter: 2018Q1

REPORT INFORMATION
  Report Type: Report from Study
  Country: CA (occurrence: CA)
  Receive Date: 20171227
  Receipt Date: 20180104
  Transmission Date: 20180509
  Serious: Yes (Life-Threatening, Hospitalization, Other)
  Sender: FDA-Public Use
  Company Number: CA-AMGEN-CANSL2017189930

PATIENT
  Age: 58 Year
  Sex: Male

DRUGS (1)
  1. ENBREL [Suspect]
     Active Substance: ETANERCEPT
     Indication: RHEUMATOID ARTHRITIS
     Dosage: 50 MG, UNK
     Route: 065
     Dates: start: 20151030

REACTIONS (8)
  - Laceration [Unknown]
  - Fracture [Recovering/Resolving]
  - Spinal fracture [Recovering/Resolving]
  - Myocardial infarction [Unknown]
  - Clavicle fracture [Recovering/Resolving]
  - Road traffic accident [Unknown]
  - Rib fracture [Recovering/Resolving]
  - Humerus fracture [Recovering/Resolving]
